FAERS Safety Report 8334095-X (Version None)
Quarter: 2012Q2

REPORT INFORMATION
  Report Type: 
  Country: None (occurrence: None)
  Receive Date: 20120503
  Receipt Date: 20120419
  Transmission Date: 20120825
  Serious: Yes (Hospitalization)
  Sender: FDA-Public Use
  Company Number: ES-AMGEN-ESPSP2012021293

PATIENT
  Sex: Female

DRUGS (3)
  1. CALCIUM [Concomitant]
     Indication: HYPOCALCAEMIA
     Dosage: UNK UNK, QD
  2. PROLIA [Suspect]
     Indication: OSTEOPOROSIS
     Dosage: UNK
  3. VITAMIN D [Concomitant]

REACTIONS (2)
  - TETANY [None]
  - HYPOCALCAEMIA [None]
